FAERS Safety Report 7211877-9 (Version None)
Quarter: 2011Q1

REPORT INFORMATION
  Report Type: 
  Country: None (occurrence: None)
  Receive Date: 20110106
  Receipt Date: 20101228
  Transmission Date: 20110831
  Serious: Yes (Hospitalization)
  Sender: FDA-Public Use
  Company Number: US-BIOGENIDEC-2010BI045188

PATIENT
  Age: 37 Year
  Sex: Female
  Weight: 120 kg

DRUGS (3)
  1. LAMICTAL [Concomitant]
     Indication: CONVULSION
  2. SEIZURE MEDICATION (NOS) [Concomitant]
     Indication: CONVULSION
     Dates: end: 20101201
  3. TYSABRI [Suspect]
     Indication: MULTIPLE SCLEROSIS
     Route: 042
     Dates: start: 20090601

REACTIONS (8)
  - GAIT DISTURBANCE [None]
  - DEPRESSED LEVEL OF CONSCIOUSNESS [None]
  - FALL [None]
  - CONVULSION [None]
  - MULTIPLE SCLEROSIS RELAPSE [None]
  - PERSONALITY CHANGE [None]
  - URINARY TRACT INFECTION [None]
  - INCOHERENT [None]
